FAERS Safety Report 11879682 (Version 2)
Quarter: 2016Q1

REPORT INFORMATION
  Report Type: Spontaneous
  Country: BR (occurrence: BR)
  Receive Date: 20151230
  Receipt Date: 20160119
  Transmission Date: 20160526
  Serious: Yes (Hospitalization, Other)
  Sender: FDA-Public Use
  Company Number: BR-ELI_LILLY_AND_COMPANY-BR201512007694

PATIENT
  Sex: Female
  Weight: 60 kg

DRUGS (13)
  1. HYDROCHLOROTHIAZIDE. [Suspect]
     Active Substance: HYDROCHLOROTHIAZIDE
     Indication: HYPERTENSION
     Dosage: 1 DF, QD
     Route: 065
     Dates: start: 2015
  2. PREDNISONA [Concomitant]
     Active Substance: PREDNISONE
     Dosage: 5 MG, BID
     Route: 065
  3. HUMULIN N [Suspect]
     Active Substance: INSULIN HUMAN
     Dosage: 12 IU, OTHER
     Route: 058
  4. NISTATINA [Concomitant]
     Active Substance: NYSTATIN
     Dosage: UNK, TID
     Route: 048
  5. BICARBONATO DE SODIO [Concomitant]
     Route: 065
  6. PREDNISONA [Concomitant]
     Active Substance: PREDNISONE
     Dosage: 5 MG, QD
     Route: 065
  7. OMEPRAZOL                          /00661201/ [Concomitant]
     Active Substance: OMEPRAZOLE
     Indication: PROPHYLAXIS
     Dosage: UNK, UNKNOWN
     Route: 065
  8. HUMULIN N [Suspect]
     Active Substance: INSULIN HUMAN
     Dosage: 8 IU, EACH EVENING
     Route: 058
  9. HUMULIN N [Suspect]
     Active Substance: INSULIN HUMAN
     Indication: TYPE 1 DIABETES MELLITUS
     Dosage: 8 IU, TID
     Route: 058
     Dates: start: 1982
  10. HUMULIN N [Suspect]
     Active Substance: INSULIN HUMAN
     Dosage: 12 IU, EACH MORNING
     Route: 058
  11. HUMULIN R [Suspect]
     Active Substance: INSULIN HUMAN
     Indication: TYPE 1 DIABETES MELLITUS
     Dosage: 4 IU, TID
     Route: 058
     Dates: start: 1982
  12. TACROLIMUS. [Concomitant]
     Active Substance: TACROLIMUS
     Dosage: UNK UNK, BID
     Route: 065
  13. MYCOPHENOLATE [Concomitant]
     Active Substance: MYCOPHENOLIC ACID
     Dosage: UNK, UNKNOWN
     Route: 065

REACTIONS (11)
  - Hypotension [Recovered/Resolved]
  - Exposure during pregnancy [Recovered/Resolved]
  - Hypoglycaemia [Recovered/Resolved]
  - Renal injury [Recovered/Resolved]
  - Cytomegalovirus infection [Recovered/Resolved]
  - Blood potassium increased [Recovered/Resolved]
  - Hypertension [Recovered/Resolved]
  - Tooth loss [Unknown]
  - Blood glucose increased [Recovered/Resolved]
  - Toothache [Unknown]
  - Blood creatinine increased [Unknown]

NARRATIVE: CASE EVENT DATE: 201509
